FAERS Safety Report 14611290 (Version 1)
Quarter: 2018Q1

REPORT INFORMATION
  Report Type: Spontaneous
  Country: FR (occurrence: FR)
  Receive Date: 20180308
  Receipt Date: 20180308
  Transmission Date: 20180509
  Serious: Yes (Other)
  Sender: FDA-Public Use
  Company Number: FR-MERCK KGAA-2043243

PATIENT
  Age: 37 Year
  Sex: Female

DRUGS (7)
  1. LEVOTHYROX 50 NF [Suspect]
     Active Substance: LEVOTHYROXINE
     Dates: start: 20170913
  2. NOVOTHYROX [Suspect]
     Active Substance: LEVOTHYROXINE SODIUM
     Indication: AUTOIMMUNE THYROIDITIS
  3. LEVOTHYROX 75 NF [Suspect]
     Active Substance: LEVOTHYROXINE SODIUM
     Dates: start: 20170913
  4. LEVOTHYROX 50 NF [Suspect]
     Active Substance: LEVOTHYROXINE
     Dates: start: 20171102
  5. LEVOTHYROX 75 NF [Suspect]
     Active Substance: LEVOTHYROXINE SODIUM
     Dates: start: 20171012
  6. LEVOTHYROX 75 NF [Suspect]
     Active Substance: LEVOTHYROXINE SODIUM
     Dates: start: 20171102
  7. LEVOTHYROX 50 NF [Suspect]
     Active Substance: LEVOTHYROXINE
     Dates: start: 20171012

REACTIONS (16)
  - Dizziness [None]
  - Acne [None]
  - Mood swings [None]
  - Blood thyroid stimulating hormone abnormal [None]
  - Psychomotor hyperactivity [None]
  - Decreased activity [None]
  - Alopecia [None]
  - Fatigue [None]
  - Irritability [None]
  - Headache [None]
  - Hypokinesia [None]
  - Loss of personal independence in daily activities [None]
  - Thyroxine free abnormal [None]
  - Vertigo [None]
  - Hypothermia [None]
  - Insomnia [None]

NARRATIVE: CASE EVENT DATE: 201706
